FAERS Safety Report 15268677 (Version 3)
Quarter: 2018Q3

REPORT INFORMATION
  Report Type: Spontaneous
  Country: AR (occurrence: AR)
  Receive Date: 20180812
  Receipt Date: 20180926
  Transmission Date: 20181010
  Serious: Yes (Other)
  Sender: FDA-Public Use
  Company Number: AR-BEH-2018093637

PATIENT
  Age: 27 Year
  Sex: Female
  Weight: 74 kg

DRUGS (7)
  1. PRIVIGEN [Suspect]
     Active Substance: HUMAN IMMUNOGLOBULIN G
     Indication: HYPOGAMMAGLOBULINAEMIA
  2. HUMAN IMMUNOGLOBULIN SC (INN) [Suspect]
     Active Substance: HUMAN IMMUNOGLOBULIN G
     Dosage: 4 G, TOT
     Route: 058
     Dates: start: 20180720
  3. HUMAN IMMUNOGLOBULIN SC (INN) [Suspect]
     Active Substance: HUMAN IMMUNOGLOBULIN G
     Dosage: 4 G, TOT
     Route: 058
     Dates: start: 2018
  4. HUMAN IMMUNOGLOBULIN SC (INN) [Suspect]
     Active Substance: HUMAN IMMUNOGLOBULIN G
     Indication: IMMUNODEFICIENCY COMMON VARIABLE
     Dosage: 8 G, QW
     Route: 058
     Dates: start: 2018
  5. IMMUNOGLOBULIN                     /00025201/ [Suspect]
     Active Substance: HUMAN IMMUNOGLOBULIN G
     Dosage: 500 MG/KG, UNK
     Route: 042
     Dates: start: 20180626
  6. PRIVIGEN [Suspect]
     Active Substance: HUMAN IMMUNOGLOBULIN G
     Indication: SECONDARY IMMUNODEFICIENCY
     Dosage: 600 MG/KG, UNK
     Route: 042
     Dates: start: 20180513
  7. HUMAN IMMUNOGLOBULIN SC (INN) [Suspect]
     Active Substance: HUMAN IMMUNOGLOBULIN G
     Dosage: 8 G, TOT
     Route: 058
     Dates: start: 20180727

REACTIONS (15)
  - Vomiting [Recovered/Resolved]
  - Headache [Unknown]
  - Infusion site urticaria [Recovered/Resolved]
  - Somnolence [Recovered/Resolved]
  - Rash [Unknown]
  - Headache [Recovered/Resolved]
  - Pyrexia [Recovered/Resolved]
  - Nausea [Recovered/Resolved]
  - Migraine [Recovered/Resolved]
  - Pruritus generalised [Recovered/Resolved]
  - Photophobia [Recovered/Resolved]
  - Urticaria [Recovered/Resolved]
  - Headache [Recovered/Resolved]
  - Meningitis aseptic [Recovered/Resolved]
  - Eye pain [Recovered/Resolved]

NARRATIVE: CASE EVENT DATE: 201805
